FAERS Safety Report 4786089-9 (Version None)
Quarter: 2005Q4

REPORT INFORMATION
  Report Type: 
  Country: None (occurrence: None)
  Receive Date: 20051003
  Receipt Date: 20051003
  Transmission Date: 20060501
  Serious: Yes (Other)
  Sender: FDA-Public Use
  Company Number: None

PATIENT
  Sex: Female

DRUGS (1)
  1. COPPERTONE LOTION SPF 15 LOTION [Suspect]
     Indication: PROPHYLAXIS
     Dosage: TOPICAL
     Route: 061

REACTIONS (2)
  - APPLICATION SITE REACTION [None]
  - BURNS SECOND DEGREE [None]
